FAERS Safety Report 7337081-1 (Version None)
Quarter: 2011Q1

REPORT INFORMATION
  Report Type: 
  Country: None (occurrence: None)
  Receive Date: 20110308
  Receipt Date: 20110224
  Transmission Date: 20110831
  Serious: Yes (Death)
  Sender: FDA-Public Use
  Company Number: JP-CELGENEUS-087-21880-11021297

PATIENT
  Sex: Female
  Weight: 47.5 kg

DRUGS (12)
  1. MAGLAX [Concomitant]
     Dosage: 990 MILLIGRAM
     Route: 048
     Dates: start: 20101016, end: 20101105
  2. LENADEX [Suspect]
     Indication: MULTIPLE MYELOMA
     Dosage: 20 MILLIGRAM
     Route: 048
     Dates: start: 20101016, end: 20101104
  3. FORSENID [Concomitant]
     Dosage: 12 MILLIGRAM
     Route: 048
     Dates: start: 20101016, end: 20101105
  4. TEGRETOL [Concomitant]
     Dosage: 200 MILLIGRAM
     Route: 048
     Dates: start: 20101016, end: 20101105
  5. SELBEX [Concomitant]
     Indication: PROPHYLAXIS
     Dosage: 150 MILLIGRAM
     Route: 048
     Dates: start: 20101016, end: 20101105
  6. MECOBALAMIN [Concomitant]
     Dosage: 1500 MILLIGRAM
     Route: 048
     Dates: start: 20101016, end: 20101105
  7. LIVALO [Concomitant]
     Dosage: 1 MILLIGRAM
     Route: 048
     Dates: start: 20101016, end: 20101105
  8. REVLIMID [Suspect]
     Indication: MULTIPLE MYELOMA
     Dosage: 25 MILLIGRAM
     Route: 048
     Dates: start: 20101016, end: 20101105
  9. RANITAC [Concomitant]
     Indication: PROPHYLAXIS
     Dosage: 150 MILLIGRAM
     Route: 048
     Dates: start: 20101016, end: 20101105
  10. LORFENAMIN [Concomitant]
     Dosage: 180 MILLIGRAM
     Route: 048
     Dates: start: 20101016, end: 20101105
  11. ASPARA-CA [Concomitant]
     Dosage: 600 MILLIGRAM
     Route: 048
     Dates: start: 20101016, end: 20101105
  12. MYSLEE [Concomitant]
     Dosage: 5 MILLIGRAM
     Route: 048
     Dates: start: 20101016, end: 20101105

REACTIONS (4)
  - MULTIPLE MYELOMA [None]
  - PNEUMONIA [None]
  - CONSTIPATION [None]
  - ANAEMIA [None]
